FAERS Safety Report 10308084 (Version 2)
Quarter: 2014Q3

REPORT INFORMATION
  Report Type: Report from Study
  Country: US (occurrence: US)
  Receive Date: 20140716
  Receipt Date: 20140716
  Transmission Date: 20150326
  Serious: Yes (Other)
  Sender: FDA-Public Use
  Company Number: US-SA-200316862US

PATIENT
  Age: 56 Year
  Sex: Female
  Weight: 66.4 kg

DRUGS (16)
  1. DOXORUBICIN [Suspect]
     Active Substance: DOXORUBICIN
     Indication: BREAST CANCER
     Dosage: DOSE AS USED: C1 108 MG, C2 108 MG, C3 108 MG, C4 108 MG
     Route: 042
     Dates: start: 20020516, end: 20020516
  2. HERCEPTIN [Suspect]
     Active Substance: TRASTUZUMAB
     Indication: BREAST CANCER
     Route: 042
     Dates: start: 20030702, end: 20030702
  3. VITAMIN E [Concomitant]
     Active Substance: .ALPHA.-TOCOPHEROL
     Indication: NUTRITIONAL SUPPLEMENTATION
  4. CHONDROITIN SULFATE/GLUCOSAMINE [Concomitant]
     Indication: NUTRITIONAL SUPPLEMENTATION
     Route: 048
  5. ZITHROMAX [Concomitant]
     Active Substance: AZITHROMYCIN DIHYDRATE
     Indication: COUGH
     Dosage: DOSE AS USED: 1 TAB
     Route: 048
     Dates: start: 20030716, end: 20030719
  6. DOCETAXEL [Suspect]
     Active Substance: DOCETAXEL
     Indication: BREAST CANCER
     Route: 042
     Dates: start: 20021023, end: 20021023
  7. HERCEPTIN [Suspect]
     Active Substance: TRASTUZUMAB
     Indication: BREAST CANCER
     Route: 042
     Dates: start: 20020821, end: 20020821
  8. DOXORUBICIN [Suspect]
     Active Substance: DOXORUBICIN
     Indication: BREAST CANCER
     Route: 042
     Dates: start: 20020801, end: 20020801
  9. DOCETAXEL [Suspect]
     Active Substance: DOCETAXEL
     Indication: BREAST CANCER
     Route: 042
     Dates: start: 20020822, end: 20020822
  10. AMITRIPTYLINE [Concomitant]
     Active Substance: AMITRIPTYLINE
     Route: 048
  11. ALBUTEROL. [Concomitant]
     Active Substance: ALBUTEROL
     Indication: COUGH
     Dosage: DOSE AS USED: 1 PUFF
     Route: 055
     Dates: start: 20030716, end: 20030716
  12. TAMOXIFEN [Concomitant]
     Active Substance: TAMOXIFEN
     Route: 048
     Dates: start: 200211
  13. MULTIVITAMINS, PLAIN [Concomitant]
     Active Substance: VITAMINS
     Indication: NUTRITIONAL SUPPLEMENTATION
     Dosage: DOSE AS USED: 1 TAB
     Route: 048
  14. CYCLOPHOSPHAMIDE. [Suspect]
     Active Substance: CYCLOPHOSPHAMIDE
     Indication: BREAST CANCER
     Dosage: DOSE AS USED: C1-4 1080 MG EACH TIME
     Route: 042
     Dates: start: 20020516, end: 20020516
  15. CYCLOPHOSPHAMIDE. [Suspect]
     Active Substance: CYCLOPHOSPHAMIDE
     Indication: BREAST CANCER
     Route: 042
     Dates: start: 20020801, end: 20020801
  16. CALTRATE [Concomitant]
     Active Substance: CALCIUM CARBONATE
     Indication: NUTRITIONAL SUPPLEMENTATION
     Route: 048

REACTIONS (4)
  - Wheezing [Unknown]
  - Dyspnoea [Unknown]
  - Congestive cardiomyopathy [Recovered/Resolved]
  - Oedema peripheral [Unknown]

NARRATIVE: CASE EVENT DATE: 20030722
